FAERS Safety Report 9707000 (Version 4)
Quarter: 2014Q1

REPORT INFORMATION
  Report Type: Spontaneous
  Country: US (occurrence: US)
  Receive Date: 20131125
  Receipt Date: 20140124
  Transmission Date: 20141002
  Serious: No
  Sender: FDA-Public Use
  Company Number: US-PFIZER INC-2013332005

PATIENT
  Age: 66 Year
  Sex: Male
  Weight: 72.56 kg

DRUGS (5)
  1. ATORVASTATIN CALCIUM [Suspect]
     Indication: BLOOD CHOLESTEROL INCREASED
     Dosage: 80 MG, DAILY
     Route: 048
     Dates: start: 2013, end: 2013
  2. ATORVASTATIN CALCIUM [Suspect]
     Indication: CORONARY ARTERY DISEASE
  3. METOPROLOL [Suspect]
     Indication: HEART RATE IRREGULAR
     Dosage: 100 MG, DAILY
     Route: 048
     Dates: start: 201102
  4. METOPROLOL [Suspect]
     Indication: HYPERTENSION
  5. SYNTHROID [Concomitant]
     Indication: HYPOTHYROIDISM
     Dosage: UNK

REACTIONS (3)
  - Drug ineffective [Unknown]
  - Extrasystoles [Recovered/Resolved]
  - Malaise [Not Recovered/Not Resolved]
